FAERS Safety Report 24267586 (Version 3)
Quarter: 2024Q3

REPORT INFORMATION
  Report Type: Spontaneous
  Country: US (occurrence: US)
  Receive Date: 20240830
  Receipt Date: 20240927
  Transmission Date: 20241017
  Serious: No
  Sender: UCB
  Company Number: US-UCBSA-2024043878

PATIENT
  Sex: Female

DRUGS (1)
  1. NAYZILAM [Suspect]
     Active Substance: MIDAZOLAM
     Indication: Seizure
     Dosage: 5 MILLIGRAM, AS NEEDED (PRN)
     Route: 045

REACTIONS (2)
  - Device issue [Unknown]
  - Incorrect dose administered [Unknown]
